FAERS Safety Report 22606225 (Version 1)
Quarter: 2023Q2

REPORT INFORMATION
  Report Type: Report from Study
  Country: BR (occurrence: BR)
  Receive Date: 20230615
  Receipt Date: 20230615
  Transmission Date: 20230722
  Serious: Yes (Other)
  Sender: FDA-Public Use
  Company Number: BR-ABBOTT-2023A-1365041

PATIENT
  Sex: Female
  Weight: 65 kg

DRUGS (4)
  1. SYNTHROID [Suspect]
     Active Substance: LEVOTHYROXINE SODIUM
     Indication: Thyroidectomy
     Dosage: MANY YEARS AGO
     Route: 048
  2. SYNTHROID [Suspect]
     Active Substance: LEVOTHYROXINE SODIUM
     Indication: Thyroidectomy
     Dosage: STARTED ABOUT 20 YEARS AGO. RIGHT AFTER THYROID SURGERY
     Route: 048
     Dates: start: 2002
  3. COVID-19 VACCINE NOS [Suspect]
     Active Substance: COVID-19 VACCINE NOS
     Indication: COVID-19 immunisation
     Route: 030
  4. VITAMIN D NOS [Concomitant]
     Active Substance: VITAMIN D NOS
     Indication: Product used for unknown indication

REACTIONS (7)
  - Breast cancer [Unknown]
  - Pain in extremity [Unknown]
  - Vaccination complication [Unknown]
  - Breast mass [Unknown]
  - Breast operation [Unknown]
  - Breast mass [Unknown]
  - Breast reconstruction [Unknown]

NARRATIVE: CASE EVENT DATE: 20130101
